FAERS Safety Report 10677697 (Version 2)
Quarter: 2015Q1

REPORT INFORMATION
  Report Type: Report from Study
  Country: IE (occurrence: IE)
  Receive Date: 20141229
  Receipt Date: 20150129
  Transmission Date: 20150720
  Serious: Yes (Death)
  Sender: FDA-Public Use
  Company Number: IE-AMGEN-IRLSL2014101091

PATIENT
  Age: 71 Year
  Sex: Male
  Weight: 64.1 kg

DRUGS (14)
  1. DOCETAXEL. [Concomitant]
     Active Substance: DOCETAXEL
     Indication: METASTATIC SQUAMOUS CELL CARCINOMA
     Dosage: Q3/52
     Route: 042
     Dates: start: 20141106, end: 20141127
  2. OXYNORM [Concomitant]
     Active Substance: OXYCODONE HYDROCHLORIDE
     Dosage: UNK
  3. OMEPRAZOLE. [Concomitant]
     Active Substance: OMEPRAZOLE
     Dosage: UNK
  4. MOVICOL                            /08437601/ [Concomitant]
     Dosage: UNK
  5. DEXAMETHASONE. [Concomitant]
     Active Substance: DEXAMETHASONE
     Dosage: UNK
  6. DIOCTYL [Concomitant]
     Active Substance: DOCUSATE SODIUM
     Dosage: UNK
  7. VALOID                             /00014902/ [Concomitant]
     Active Substance: CYCLIZINE HYDROCHLORIDE
     Dosage: UNK
  8. LYRICA [Concomitant]
     Active Substance: PREGABALIN
     Dosage: UNK
  9. CALOGEN                            /00371903/ [Concomitant]
     Dosage: UNK
  10. CETUXIMAB [Concomitant]
     Active Substance: CETUXIMAB
     Indication: METASTATIC SQUAMOUS CELL CARCINOMA
     Dosage: UNK
  11. NEULASTA [Suspect]
     Active Substance: PEGFILGRASTIM
     Indication: HEAD AND NECK CANCER
     Dosage: 6 MG, Q3/52
     Route: 058
     Dates: start: 20141107
  12. OXYCONTIN [Concomitant]
     Active Substance: OXYCODONE HYDROCHLORIDE
     Dosage: UNK
  13. AMLODIPINE [Concomitant]
     Active Substance: AMLODIPINE BESYLATE
     Dosage: UNK
  14. 5-FU                               /00098801/ [Concomitant]
     Active Substance: FLUOROURACIL
     Indication: METASTATIC SQUAMOUS CELL CARCINOMA
     Dosage: UNK

REACTIONS (1)
  - Squamous cell carcinoma of head and neck [Fatal]
